FAERS Safety Report 24152094 (Version 3)
Quarter: 2025Q1

REPORT INFORMATION
  Report Type: Spontaneous
  Country: CA (occurrence: CA)
  Receive Date: 20240730
  Receipt Date: 20250331
  Transmission Date: 20250408
  Serious: Yes (Hospitalization, Disabling, Other)
  Sender: PFIZER
  Company Number: CA-PFIZER INC-202400190564

PATIENT
  Age: 28 Year
  Sex: Male

DRUGS (3)
  1. CIBINQO [Suspect]
     Active Substance: ABROCITINIB
     Indication: Dermatitis atopic
     Dosage: 200 MG, 1X/DAY
     Route: 048
     Dates: start: 20240309
  2. ABROCITINIB [Concomitant]
     Active Substance: ABROCITINIB
  3. CLOBETASOL PROPIONATE [Concomitant]
     Active Substance: CLOBETASOL PROPIONATE
     Dates: start: 2011

REACTIONS (12)
  - Blindness [Recovering/Resolving]
  - Ophthalmic herpes simplex [Recovering/Resolving]
  - Eyelid skin dryness [Not Recovered/Not Resolved]
  - Condition aggravated [Not Recovered/Not Resolved]
  - Eye infection [Not Recovered/Not Resolved]
  - Eye inflammation [Not Recovered/Not Resolved]
  - Lacrimation decreased [Not Recovered/Not Resolved]
  - Ocular hyperaemia [Recovering/Resolving]
  - Eye pruritus [Recovering/Resolving]
  - Eye swelling [Recovering/Resolving]
  - Dry skin [Unknown]
  - Skin discolouration [Unknown]

NARRATIVE: CASE EVENT DATE: 20240101
